FAERS Safety Report 4336317-9 (Version None)
Quarter: 2004Q2

REPORT INFORMATION
  Report Type: 
  Country: None (occurrence: None)
  Receive Date: 20040407
  Receipt Date: 20040318
  Transmission Date: 20050107
  Serious: Yes (Hospitalization)
  Sender: FDA-Public Use
  Company Number: US_0403101679

PATIENT
  Sex: Female

DRUGS (4)
  1. PROZAC [Suspect]
  2. BUSPIRONE HCL [Concomitant]
  3. THYROID TAB [Concomitant]
  4. LEXAPRO [Concomitant]

REACTIONS (2)
  - PETIT MAL EPILEPSY [None]
  - TREMOR [None]
